FAERS Safety Report 4846003-4 (Version None)
Quarter: 2005Q4

REPORT INFORMATION
  Report Type: 
  Country: None (occurrence: None)
  Receive Date: 20051201
  Receipt Date: 20051122
  Transmission Date: 20060501
  Serious: Yes (Other)
  Sender: FDA-Public Use
  Company Number: 2005157339

PATIENT
  Age: 2 Year
  Sex: Female

DRUGS (1)
  1. LISTERINE (MENTHOL, METHYL SALICYLATE, EUCALYPTOL, THYMOL) [Suspect]
     Indication: ACCIDENTAL EXPOSURE
     Dosage: ALMOST 1/2 BOTTLE ONCE, ORAL
     Route: 048
     Dates: start: 20051115, end: 20051115

REACTIONS (5)
  - ABDOMINAL PAIN [None]
  - ACCIDENTAL EXPOSURE [None]
  - DIARRHOEA [None]
  - FLATULENCE [None]
  - VOMITING [None]
